FAERS Safety Report 15402577 (Version 1)
Quarter: 2018Q3

REPORT INFORMATION
  Report Type: Spontaneous
  Country: US (occurrence: US)
  Receive Date: 20180919
  Receipt Date: 20180919
  Transmission Date: 20181010
  Serious: Yes (Hospitalization, Other)
  Sender: FDA-Public Use
  Company Number: US-NOVOPROD-621161

PATIENT
  Age: 46 Year
  Sex: Female
  Weight: 83.45 kg

DRUGS (5)
  1. HEPARIN [Concomitant]
     Active Substance: HEPARIN SODIUM
     Indication: COAGULOPATHY
     Dosage: UNK
     Route: 065
  2. HUMIRA [Suspect]
     Active Substance: ADALIMUMAB
     Indication: PSORIATIC ARTHROPATHY
     Dosage: 40 MG, ONCE EVERY TWO WEEKS
     Route: 058
     Dates: start: 201604, end: 20180502
  3. VITAMIN B12 [Concomitant]
     Active Substance: CYANOCOBALAMIN
     Indication: VITAMIN SUPPLEMENTATION
     Dosage: UNK
     Route: 065
  4. VICTOZA [Suspect]
     Active Substance: LIRAGLUTIDE
     Indication: DIABETES MELLITUS
     Dosage: 1.8 MG, QD
     Route: 058
     Dates: start: 201805
  5. PRENATAL VITAMINS                  /02014401/ [Concomitant]
     Active Substance: VITAMINS
     Indication: VITAMIN SUPPLEMENTATION
     Dosage: UNK
     Route: 048

REACTIONS (10)
  - Weight decreased [Not Recovered/Not Resolved]
  - Herpes zoster [Recovering/Resolving]
  - Blood thyroid stimulating hormone decreased [Not Recovered/Not Resolved]
  - Blood magnesium decreased [Recovering/Resolving]
  - Glycosylated haemoglobin increased [Recovering/Resolving]
  - Blood phosphorus decreased [Recovering/Resolving]
  - Facial paralysis [Recovering/Resolving]
  - Swelling face [Recovering/Resolving]
  - Dyspnoea [Not Recovered/Not Resolved]
  - Lactic acidosis [Unknown]

NARRATIVE: CASE EVENT DATE: 201805
